FAERS Safety Report 4489788-1 (Version None)
Quarter: 2004Q4

REPORT INFORMATION
  Report Type: 
  Country: None (occurrence: None)
  Receive Date: 20041026
  Receipt Date: 20041013
  Transmission Date: 20050328
  Serious: Yes (Death, Hospitalization, Other)
  Sender: FDA-Public Use
  Company Number: JP_041004715

PATIENT
  Age: 62 Year
  Sex: Male

DRUGS (9)
  1. ONCOVIN [Suspect]
     Indication: MYCOSIS FUNGOIDES STAGE IV
  2. CYCLOPHOSPHAMIDE [Concomitant]
  3. DOXORUBICIN HCL [Concomitant]
  4. METHOTREXATE [Concomitant]
  5. BLEOMYCIN [Concomitant]
  6. ETOPOSIDE [Concomitant]
  7. IFOSFAMIDE [Concomitant]
  8. CISPLATIN [Concomitant]
  9. CYTARABINE [Concomitant]

REACTIONS (5)
  - DISEASE PROGRESSION [None]
  - GENERAL PHYSICAL HEALTH DETERIORATION [None]
  - RECURRENT CANCER [None]
  - RENAL FAILURE ACUTE [None]
  - SEPSIS [None]
